FAERS Safety Report 25583679 (Version 1)
Quarter: 2025Q3

REPORT INFORMATION
  Report Type: Spontaneous
  Country: GB (occurrence: GB)
  Receive Date: 20250721
  Receipt Date: 20250721
  Transmission Date: 20251021
  Serious: Yes (Other)
  Sender: ROCHE
  Company Number: GB-ROCHE-10000333030

PATIENT
  Age: 47 Year
  Sex: Female

DRUGS (1)
  1. OCRELIZUMAB [Suspect]
     Active Substance: OCRELIZUMAB
     Indication: Relapsing-remitting multiple sclerosis
     Route: 065
     Dates: start: 2011

REACTIONS (15)
  - Rheumatoid arthritis [Unknown]
  - Arthralgia [Unknown]
  - Swelling [Unknown]
  - Odynophagia [Unknown]
  - Hypogammaglobulinaemia [Unknown]
  - Blood alkaline phosphatase increased [Recovering/Resolving]
  - C-reactive protein increased [Recovering/Resolving]
  - Renal impairment [Unknown]
  - Lung disorder [Unknown]
  - Breast neoplasm [Unknown]
  - Breast disorder [Unknown]
  - Amyloidosis [Unknown]
  - Red blood cell sedimentation rate increased [Recovering/Resolving]
  - Oesophageal disorder [Unknown]
  - Gastrointestinal disorder [Unknown]

NARRATIVE: CASE EVENT DATE: 20240101
